FAERS Safety Report 13855594 (Version 2)
Quarter: 2017Q4

REPORT INFORMATION
  Report Type: Spontaneous
  Country: DE (occurrence: DE)
  Receive Date: 20170810
  Receipt Date: 20171004
  Transmission Date: 20180320
  Serious: Yes (Other)
  Sender: FDA-Public Use
  Company Number: DE-BAYER-2017-151553

PATIENT
  Age: 34 Year
  Sex: Female

DRUGS (2)
  1. CORTISON [Concomitant]
     Active Substance: CORTISONE ACETATE
     Dosage: UNK
     Dates: start: 201703
  2. MIRENA [Suspect]
     Active Substance: LEVONORGESTREL
     Dosage: 20 MCG/24HR, CONT
     Route: 015
     Dates: start: 20140407

REACTIONS (6)
  - Weight increased [None]
  - Idiopathic intracranial hypertension [None]
  - Galactorrhoea [None]
  - Headache [None]
  - CSF pressure increased [None]
  - Visual impairment [None]

NARRATIVE: CASE EVENT DATE: 2017
